FAERS Safety Report 7400492-X (Version None)
Quarter: 2011Q2

REPORT INFORMATION
  Report Type: 
  Country: None (occurrence: None)
  Receive Date: 20110407
  Receipt Date: 20110331
  Transmission Date: 20111010
  Serious: Yes (Other)
  Sender: FDA-Public Use
  Company Number: US-PFIZER INC-2011072802

PATIENT
  Sex: Female

DRUGS (2)
  1. ROXICODONE [Concomitant]
     Indication: PAIN
     Dosage: 30 MG, UNK
  2. PRISTIQ [Suspect]
     Indication: PAIN
     Dosage: 50 MG, 1X/DAY
     Route: 048
     Dates: start: 20110322, end: 20110326

REACTIONS (2)
  - URTICARIA [None]
  - DYSURIA [None]
